FAERS Safety Report 25946075 (Version 1)
Quarter: 2025Q4

REPORT INFORMATION
  Report Type: Spontaneous
  Country: KR (occurrence: KR)
  Receive Date: 20251021
  Receipt Date: 20251021
  Transmission Date: 20260118
  Serious: Yes (Other)
  Sender: BEIGENE
  Company Number: KR-BEIGENE-BGN-2025-018022

PATIENT

DRUGS (1)
  1. TEVIMBRA [Suspect]
     Active Substance: TISLELIZUMAB-JSGR
     Indication: Gastric cancer
     Dosage: 3 CYCLES

REACTIONS (1)
  - Hepatotoxicity [Unknown]
